FAERS Safety Report 25448856 (Version 1)
Quarter: 2025Q2

REPORT INFORMATION
  Report Type: Spontaneous
  Country: US (occurrence: US)
  Receive Date: 20250618
  Receipt Date: 20250618
  Transmission Date: 20250717
  Serious: No
  Sender: GILEAD
  Company Number: US-GILEAD-2025-0717050

PATIENT
  Age: 47 Year
  Sex: Female

DRUGS (1)
  1. VEMLIDY [Suspect]
     Active Substance: TENOFOVIR ALAFENAMIDE FUMARATE
     Indication: Chronic hepatitis B
     Route: 065

REACTIONS (2)
  - Viral load increased [Not Recovered/Not Resolved]
  - Therapy non-responder [Not Recovered/Not Resolved]
